FAERS Safety Report 10175918 (Version 1)
Quarter: 2014Q2

REPORT INFORMATION
  Report Type: Spontaneous
  Country: CN (occurrence: CN)
  Receive Date: 20140516
  Receipt Date: 20140516
  Transmission Date: 20141212
  Serious: Yes (Other)
  Sender: FDA-Public Use
  Company Number: PHHY2014CN059057

PATIENT
  Age: 58 Year
  Sex: Female
  Weight: 58 kg

DRUGS (1)
  1. LOTENSIN [Suspect]
     Indication: BLOOD PRESSURE DECREASED
     Dosage: 10 MG, QD
     Route: 048
     Dates: start: 20130521, end: 20130523

REACTIONS (1)
  - Palpitations [Recovered/Resolved]
